FAERS Safety Report 9869641 (Version 1)
Quarter: 2014Q1

REPORT INFORMATION
  Report Type: Spontaneous
  Country: US (occurrence: None)
  Receive Date: 20140203
  Receipt Date: 20140203
  Transmission Date: 20141002
  Serious: Yes (Life-Threatening, Hospitalization)
  Sender: FDA-Public Use
  Company Number: None

PATIENT
  Sex: Female

DRUGS (2)
  1. LAMICTAL [Suspect]
     Route: 048
  2. AMITRIPTYLINE HCL [Suspect]
     Route: 048

REACTIONS (3)
  - Urticaria [None]
  - Anaphylactic reaction [None]
  - Drug interaction [None]
